FAERS Safety Report 4443660-1 (Version None)
Quarter: 2004Q3

REPORT INFORMATION
  Report Type: 
  Country: None (occurrence: None)
  Receive Date: 20040908
  Receipt Date: 20040624
  Transmission Date: 20050211
  Serious: Yes (Disabling)
  Sender: FDA-Public Use
  Company Number: JP-GLAXOSMITHKLINE-B0337106A

PATIENT
  Age: 43 Year
  Sex: Male
  Weight: 50 kg

DRUGS (13)
  1. ZOVIRAX [Suspect]
     Indication: HERPES ZOSTER
     Dosage: 200MG SEE DOSAGE TEXT
     Route: 048
     Dates: start: 20040617, end: 20040622
  2. ZYLORIC [Concomitant]
     Dosage: 50MG PER DAY
     Route: 048
  3. FULSTAN [Concomitant]
     Indication: HYPERPARATHYROIDISM
     Dosage: .15MCG PER DAY
     Route: 048
  4. MYSLEE [Concomitant]
     Indication: INSOMNIA
     Dosage: 10MG PER DAY
     Route: 048
  5. DEPAS [Concomitant]
     Indication: IRRITABILITY
     Dosage: 1MG PER DAY
     Route: 048
  6. DOPS (JAPAN) [Concomitant]
     Indication: HYPOTENSION
     Dosage: 400MG PER DAY
     Route: 048
  7. PREDNISOLONE [Concomitant]
     Indication: CARDIOMYOPATHY
     Dosage: 5MG PER DAY
     Route: 048
  8. ZANTAC [Concomitant]
     Indication: GASTRIC ULCER
     Dosage: 150MG PER DAY
     Route: 048
  9. ALESION [Concomitant]
     Indication: RHINITIS
     Dosage: 10MG PER DAY
     Route: 048
  10. LANIRAPID [Concomitant]
     Indication: CARDIOMYOPATHY
     Dosage: .025MG PER DAY
     Route: 048
  11. ACARDI [Concomitant]
     Indication: CARDIOMYOPATHY
     Dosage: 1.25MG PER DAY
     Route: 048
  12. CARVEDILOL [Concomitant]
     Indication: CARDIOMYOPATHY
     Dosage: 1TAB PER DAY
     Route: 048
  13. NU-LOTAN [Concomitant]
     Indication: CARDIOMYOPATHY
     Dosage: 12.5MG PER DAY
     Route: 048

REACTIONS (4)
  - DEPRESSED LEVEL OF CONSCIOUSNESS [None]
  - DYSLALIA [None]
  - FALL [None]
  - SPEECH DISORDER [None]
